FAERS Safety Report 5432321-8 (Version None)
Quarter: 2007Q3

REPORT INFORMATION
  Report Type: 
  Country: None (occurrence: None)
  Receive Date: 20070831
  Receipt Date: 20070822
  Transmission Date: 20080115
  Serious: Yes (Other)
  Sender: FDA-Public Use
  Company Number: US-JNJFOC-20070801185

PATIENT
  Sex: Male

DRUGS (1)
  1. REMICADE [Suspect]
     Indication: RHEUMATOID ARTHRITIS
     Route: 042

REACTIONS (12)
  - ASTHENIA [None]
  - CONTUSION [None]
  - DRUG INEFFECTIVE [None]
  - FATIGUE [None]
  - FORMICATION [None]
  - GINGIVAL PAIN [None]
  - HYPOAESTHESIA [None]
  - JOINT SWELLING [None]
  - MALAISE [None]
  - MUSCULOSKELETAL PAIN [None]
  - NAIL DISORDER [None]
  - ONYCHOMADESIS [None]
